FAERS Safety Report 21384529 (Version 2)
Quarter: 2022Q4

REPORT INFORMATION
  Report Type: Spontaneous
  Country: JP (occurrence: JP)
  Receive Date: 20220928
  Receipt Date: 20221117
  Transmission Date: 20230112
  Serious: Yes (Hospitalization, Disabling, Other)
  Sender: FDA-Public Use
  Company Number: JP-BAYER-2022A133186

PATIENT
  Age: 82 Year
  Sex: Female

DRUGS (12)
  1. EYLEA [Suspect]
     Active Substance: AFLIBERCEPT
     Indication: Diabetic retinopathy
     Dosage: 0.05 ML, ONCE SOLUTION FOR INJECTION
     Route: 031
     Dates: start: 20190806, end: 20190806
  2. EYLEA [Suspect]
     Active Substance: AFLIBERCEPT
     Indication: Macular oedema
     Dosage: 0.05 ML, ONCE SOLUTION FOR INJECTION
     Route: 031
     Dates: start: 20200114, end: 20200114
  3. EYLEA [Suspect]
     Active Substance: AFLIBERCEPT
     Dosage: 0.05 ML, ONCE SOLUTION FOR INJECTION
     Route: 031
     Dates: start: 20200908, end: 20200908
  4. EYLEA [Suspect]
     Active Substance: AFLIBERCEPT
     Dosage: 0.05 ML, ONCE SOLUTION FOR INJECTION
     Route: 031
     Dates: start: 20201013, end: 20201013
  5. EYLEA [Suspect]
     Active Substance: AFLIBERCEPT
     Dosage: 0.05 ML, ONCE SOLUTION FOR INJECTION
     Route: 031
     Dates: start: 20201118, end: 20201118
  6. EYLEA [Suspect]
     Active Substance: AFLIBERCEPT
     Dosage: 0.05 ML, ONCE SOLUTION FOR INJECTION
     Route: 031
     Dates: start: 20210428, end: 20210428
  7. EYLEA [Suspect]
     Active Substance: AFLIBERCEPT
     Dosage: 0.05 ML, ONCE SOLUTION FOR INJECTION
     Route: 031
     Dates: start: 20210811, end: 20210811
  8. EYLEA [Suspect]
     Active Substance: AFLIBERCEPT
     Dosage: 0.05 ML, ONCE SOLUTION FOR INJECTION
     Route: 031
     Dates: start: 20210915, end: 20210915
  9. XALATAN [Concomitant]
     Active Substance: LATANOPROST
     Indication: Product used for unknown indication
     Dosage: BOTH EYES 5 TIMES DAILY
     Dates: start: 20171028, end: 20220120
  10. TRANILAST [Concomitant]
     Active Substance: TRANILAST
     Indication: Product used for unknown indication
     Dosage: BOTH EYES 3 TIMES DAILY
     Dates: start: 20180227, end: 20211027
  11. MOXIFLOXACIN HYDROCHLORIDE [Concomitant]
     Active Substance: MOXIFLOXACIN HYDROCHLORIDE
     Indication: Product used for unknown indication
     Dosage: RIGHT EYE 5 TIMES DAILY
     Dates: start: 20210811, end: 20211027
  12. FLUOROMETHOLONE [Concomitant]
     Active Substance: FLUOROMETHOLONE
     Dosage: RIGHT EYE 5 TIMES DAILY
     Dates: start: 20180812, end: 20180818

REACTIONS (6)
  - Visual impairment [Recovered/Resolved with Sequelae]
  - Endophthalmitis [Recovered/Resolved with Sequelae]
  - Corneal opacity [Recovered/Resolved with Sequelae]
  - Corneal opacity [Unknown]
  - Corneal striae [Recovered/Resolved with Sequelae]
  - Keratic precipitates [Recovered/Resolved with Sequelae]

NARRATIVE: CASE EVENT DATE: 20210812
